FAERS Safety Report 24804320 (Version 2)
Quarter: 2025Q1

REPORT INFORMATION
  Report Type: Spontaneous
  Country: CA (occurrence: CA)
  Receive Date: 20250103
  Receipt Date: 20250228
  Transmission Date: 20250409
  Serious: Yes (Hospitalization)
  Sender: PFIZER
  Company Number: CA-PFIZER INC-202300361623

PATIENT
  Age: 59 Year
  Sex: Male

DRUGS (19)
  1. ABRILADA [Suspect]
     Active Substance: ADALIMUMAB-AFZB
     Indication: Crohn^s disease
     Dosage: 80 MG, WEEKLY
     Route: 058
     Dates: start: 20231117
  2. ABRILADA [Suspect]
     Active Substance: ADALIMUMAB-AFZB
     Dosage: 80 MG, WEEKLY
     Route: 058
     Dates: start: 2024
  3. ARANESP [Concomitant]
     Active Substance: DARBEPOETIN ALFA
     Route: 058
  4. CHOLECALCIFEROL [Concomitant]
     Active Substance: CHOLECALCIFEROL
     Dosage: 5000 IU, 1X/DAY (TAKE 2 TABLETS (5,000 UNITS) 1 (ONE) TIME EACH DAY IN THE MORNING)
     Route: 048
  5. MOMETASONE FUROATE [Concomitant]
     Active Substance: MOMETASONE FUROATE
     Dosage: UNK, 2X/DAY (APPLY 1 APPLICATION  TOPICALLY 2 (TWO) TIMES A DAY IF NEEDED)
     Route: 061
  6. FOLVITE [Concomitant]
     Active Substance: FOLIC ACID
     Dosage: 5 MG, WEEKLY (TAKE 1 TABLET (5 MG) BY MOUTH PER WEEK)
     Route: 048
  7. FUSIDIC ACID [Concomitant]
     Active Substance: FUSIDIC ACID
     Dosage: UNK, 2X/DAY (APPLY 1 APPLICATION  TOPICALLY 2 (TWO) TIMES A DAY IF NEEDED)
     Route: 061
  8. LAMISIL [Concomitant]
     Active Substance: TERBINAFINE HYDROCHLORIDE
     Dosage: UNK UNK, 2X/DAY (APPLY TOPICALLY 2 (TWO) TIMES A DAY)
     Route: 061
  9. METHOTREXATE [Concomitant]
     Active Substance: METHOTREXATE
  10. METHOTREXATE [Concomitant]
     Active Substance: METHOTREXATE
     Dosage: 7.5 MG, WEEKLY (TAKE 3 TABLETS 1 (ONE) TIME PER WEEK. FRIDAY AT SUPPER)
     Route: 048
  11. MYRBETRIQ [Concomitant]
     Active Substance: MIRABEGRON
     Dosage: 50 MG, 1X/DAY (TAKE 1 TABLET (50 MG) 1 (ONE) TIME EACH DAY)
     Route: 048
  12. FERROUS FUMARATE [Concomitant]
     Active Substance: FERROUS FUMARATE
     Dosage: 300 MG, 2X/DAY
     Route: 048
     Dates: end: 20241205
  13. FERROUS FUMARATE [Concomitant]
     Active Substance: FERROUS FUMARATE
     Dosage: 300 MG, 1X/DAY (TAKE 1 CAPSULE (300 MG) 1 (ONE) TIME EACH DAY IN THE MORNING)
     Route: 048
  14. PANTOPRAZOLE MAGNESIUM [Concomitant]
     Active Substance: PANTOPRAZOLE MAGNESIUM
     Dosage: 40 MG, 1X/DAY (1 (ONE) TIME EACH DAY BEFORE BREAKFAST)
     Route: 048
  15. TOUJEO [Concomitant]
     Active Substance: INSULIN GLARGINE
     Dosage: 14 IU, 1X/DAY (1 (ONE) TIME EACH DAY IN THE MORNING)
     Route: 058
  16. TUMS [Concomitant]
     Active Substance: CALCIUM CARBONATE
     Dosage: 200 MG, 3X/DAY (CHEW 1 TABLET (200 MG) 3 (THREE) TIMES A DAY. OVER THE COUNTER)
     Route: 048
  17. TYLENOL EXTRA STRENGTH [Concomitant]
     Active Substance: ACETAMINOPHEN
     Route: 048
  18. VENTOLIN [Concomitant]
     Active Substance: ALBUTEROL SULFATE
     Indication: Dyspnoea
     Dosage: 2 DF, 4X/DAY (INHALE 2 PUFFS 4 (FOUR) TIMES A DAY IF NEEDED)
     Route: 055
  19. ZYLOPRIM [Concomitant]
     Active Substance: ALLOPURINOL
     Dosage: 200 MG, 1X/DAY (TAKE 1 TABLET (200 MG 1 (ONE) TIME EACH DAY)
     Route: 048

REACTIONS (7)
  - Escherichia urinary tract infection [Unknown]
  - Pyrexia [Recovered/Resolved]
  - Gastrointestinal stoma complication [Unknown]
  - Tachycardia [Unknown]
  - Leukocytosis [Unknown]
  - Blood creatinine increased [Unknown]
  - Off label use [Unknown]

NARRATIVE: CASE EVENT DATE: 20240101
